FAERS Safety Report 6945574-1 (Version None)
Quarter: 2010Q3

REPORT INFORMATION
  Report Type: 
  Country: None (occurrence: None)
  Receive Date: 20100827
  Receipt Date: 20100818
  Transmission Date: 20110219
  Serious: Yes (Other)
  Sender: FDA-Public Use
  Company Number: US-ROCHE-722635

PATIENT
  Age: 58 Year
  Sex: Female
  Weight: 47.6 kg

DRUGS (4)
  1. BONIVA [Suspect]
     Indication: OSTEOPOROSIS POSTMENOPAUSAL
     Route: 042
     Dates: start: 20100817
  2. LIPITOR [Concomitant]
     Route: 065
  3. ZEGERID [Concomitant]
  4. RANITIDINE [Concomitant]

REACTIONS (9)
  - ASTHENIA [None]
  - BLOOD PRESSURE INCREASED [None]
  - CHEST PAIN [None]
  - CHOKING SENSATION [None]
  - FEELING COLD [None]
  - HEADACHE [None]
  - INJECTION SITE REACTION [None]
  - LOSS OF CONSCIOUSNESS [None]
  - MALAISE [None]
